FAERS Safety Report 9660573 (Version 1)
Quarter: 2013Q4

REPORT INFORMATION
  Report Type: Spontaneous
  Country: BR (occurrence: BR)
  Receive Date: 20131031
  Receipt Date: 20131031
  Transmission Date: 20140711
  Serious: Yes (Hospitalization, Other)
  Sender: FDA-Public Use
  Company Number: BR-PFIZER INC-2013306888

PATIENT
  Sex: Female
  Weight: 69 kg

DRUGS (9)
  1. LYRICA [Suspect]
     Dosage: 75 MG, 2X/DAY
     Route: 048
     Dates: start: 20101024
  2. ATENOLOL [Concomitant]
     Indication: HYPERTENSION
     Dosage: 2 DF, DAILY
  3. CALTRATE [Concomitant]
     Indication: BLOOD CALCIUM
     Dosage: 1 TABLET, DAILY
     Dates: start: 201308
  4. METICORTEN [Concomitant]
     Indication: PARANEOPLASTIC SYNDROME
     Dosage: 1 TABLET, DAILY
     Dates: start: 201307
  5. METICORTEN [Concomitant]
     Indication: ARTHROPATHY
  6. NORIPURUM [Concomitant]
     Indication: BLOOD IRON
     Dosage: 2 DF, DAILY
     Dates: start: 201308
  7. PANTOPRAZOLE [Concomitant]
     Indication: NAUSEA
     Dosage: 1 TABLET, DAILY
     Dates: start: 2012
  8. PANTOPRAZOLE [Concomitant]
     Indication: DYSPEPSIA
  9. SEROQUEL [Concomitant]
     Indication: SLEEP DISORDER
     Dosage: 1 TABLET, DAILY
     Dates: start: 2010

REACTIONS (3)
  - Cancer pain [Unknown]
  - Breast cancer [Unknown]
  - Amnesia [Unknown]
